FAERS Safety Report 6243080-3 (Version None)
Quarter: 2009Q2

REPORT INFORMATION
  Report Type: 
  Country: None (occurrence: None)
  Receive Date: 20090617
  Receipt Date: 20080514
  Transmission Date: 20091009
  Serious: No
  Sender: FDA-Public Use
  Company Number: 275337

PATIENT
  Age: 44 Year
  Sex: Female

DRUGS (4)
  1. LEVEMIR [Suspect]
     Indication: DIABETES MELLITUS
     Dosage: 12 IU, QD, SUBCUTANEOUS
     Route: 058
     Dates: start: 20080401
  2. NOVOLOG [Suspect]
     Indication: DIABETES MELLITUS
     Dosage: 2 IU, TID, SUBCUTANEOUS
     Route: 058
     Dates: start: 20080401
  3. TAXOL [Concomitant]
  4. BENADRYL [Concomitant]

REACTIONS (2)
  - HYPOAESTHESIA ORAL [None]
  - SWOLLEN TONGUE [None]
